FAERS Safety Report 7651514-2 (Version None)
Quarter: 2011Q3

REPORT INFORMATION
  Report Type: 
  Country: None (occurrence: None)
  Receive Date: 20110802
  Receipt Date: 20110726
  Transmission Date: 20111222
  Serious: Yes (Death, Hospitalization, Other)
  Sender: FDA-Public Use
  Company Number: PHNU2007DE01855

PATIENT
  Sex: Male
  Weight: 72 kg

DRUGS (9)
  1. EMBOLEX [Concomitant]
  2. CALCIUM ACETATE [Concomitant]
     Route: 065
     Dates: start: 20060901
  3. TAXOTERE [Concomitant]
     Indication: CHEMOTHERAPY
     Dosage: 130 MG, TIW
     Route: 065
     Dates: start: 20061101
  4. CAPTOPRIL [Concomitant]
  5. ZOMETA [Suspect]
     Indication: METASTASES TO BONE
     Dosage: 4 MG, QMO
     Dates: start: 20060511, end: 20070701
  6. ZOMETA [Suspect]
     Dosage: 2 MG, QMO
     Route: 042
     Dates: start: 20070803, end: 20071101
  7. FURANTHRIL [Concomitant]
     Route: 065
     Dates: start: 20061219
  8. CASODEX [Concomitant]
     Route: 065
     Dates: start: 20051001
  9. ZOMETA [Suspect]
     Dates: start: 20070510, end: 20070510

REACTIONS (10)
  - POSTRENAL FAILURE [None]
  - HYPERTENSION [None]
  - PROSTATIC SPECIFIC ANTIGEN INCREASED [None]
  - BLOOD CREATININE INCREASED [None]
  - OEDEMA PERIPHERAL [None]
  - GENERAL PHYSICAL HEALTH DETERIORATION [None]
  - HYDRONEPHROSIS [None]
  - NEOPLASM MALIGNANT [None]
  - GASTROINTESTINAL HAEMORRHAGE [None]
  - LEUKOPENIA [None]
